FAERS Safety Report 7812059-X (Version None)
Quarter: 2011Q4

REPORT INFORMATION
  Report Type: 
  Country: None (occurrence: None)
  Receive Date: 20111011
  Receipt Date: 20110928
  Transmission Date: 20120403
  Serious: Yes (Life-Threatening, Hospitalization)
  Sender: FDA-Public Use
  Company Number: 2011-01125

PATIENT
  Sex: Male
  Weight: 1.8 kg

DRUGS (4)
  1. ASPIRIN [Concomitant]
  2. NEBIVOLOL (UNKNOWN) [Concomitant]
  3. LISINOPRIL [Suspect]
     Indication: HYPERTENSION
     Dosage: 40 MG (20 MG,2 IN 1 D),TRANSPLACENTAL
     Route: 064
     Dates: start: 20101009, end: 20110516
  4. BENDROFLUAZIDE (UNKNOWN) [Concomitant]

REACTIONS (7)
  - PERSISTENT FOETAL CIRCULATION [None]
  - SKULL MALFORMATION [None]
  - RENAL TUBULAR ACIDOSIS [None]
  - MATERNAL DRUGS AFFECTING FOETUS [None]
  - OSTEOPENIA [None]
  - OLIGOHYDRAMNIOS [None]
  - RENAL IMPAIRMENT NEONATAL [None]
